FAERS Safety Report 4412710-0 (Version None)
Quarter: 2004Q2

REPORT INFORMATION
  Report Type: 
  Country: None (occurrence: None)
  Receive Date: 20040630
  Receipt Date: 20040519
  Transmission Date: 20050107
  Serious: No
  Sender: FDA-Public Use
  Company Number: 04P-163-0261317-00

PATIENT
  Age: 31 Year
  Sex: Female
  Weight: 79.3795 kg

DRUGS (12)
  1. HUMIRA [Suspect]
     Indication: RHEUMATOID ARTHRITIS
     Dosage: 40 MG, 1 IN 2 WK, SUBCUTANEOUS
     Route: 058
     Dates: start: 20040317
  2. LODENE [Concomitant]
  3. SERTRALINE HYDROCHLORIDE [Concomitant]
  4. FOLIC ACID [Concomitant]
  5. CYCLOBENZAPRINE HYDROCHLORIDE [Concomitant]
  6. ACETAMINOPHEN W/ CODEINE [Concomitant]
  7. METHOTREXATE [Concomitant]
  8. ASCORBIC ACID [Concomitant]
  9. CALCIUM [Concomitant]
  10. FISH OIL [Concomitant]
  11. MULTI-VITAMINS [Concomitant]
  12. NASOCORT AQ [Concomitant]

REACTIONS (1)
  - INJECTION SITE HAEMORRHAGE [None]
